FAERS Safety Report 8484071-1 (Version None)
Quarter: 2012Q3

REPORT INFORMATION
  Report Type: 
  Country: None (occurrence: None)
  Receive Date: 20120703
  Receipt Date: 20120622
  Transmission Date: 20120928
  Serious: Yes (Other)
  Sender: FDA-Public Use
  Company Number: US-ELI_LILLY_AND_COMPANY-US201206008373

PATIENT
  Age: 41 Year
  Sex: Male

DRUGS (1)
  1. HUMULIN R [Suspect]
     Dosage: UNK
     Route: 058

REACTIONS (4)
  - NEOPLASM MALIGNANT [None]
  - BLOOD GLUCOSE INCREASED [None]
  - BLOOD GLUCOSE DECREASED [None]
  - OFF LABEL USE [None]
